FAERS Safety Report 8932786 (Version 1)
Quarter: 2012Q4

REPORT INFORMATION
  Report Type: Spontaneous
  Country: US (occurrence: None)
  Receive Date: 20121127
  Receipt Date: 20121127
  Transmission Date: 20130627
  Serious: No
  Sender: FDA-Public Use
  Company Number: None

PATIENT
  Sex: Female
  Weight: 70.76 kg

DRUGS (1)
  1. ZIPRASIDONE [Suspect]
     Indication: MANIC DEPRESSIVE PSYCHOSIS
     Route: 048
     Dates: start: 20120926, end: 20121030

REACTIONS (2)
  - Palpitations [None]
  - Vision blurred [None]
